FAERS Safety Report 19090815 (Version 1)
Quarter: 2021Q2

REPORT INFORMATION
  Report Type: Spontaneous
  Country: US (occurrence: US)
  Receive Date: 20210405
  Receipt Date: 20210405
  Transmission Date: 20210717
  Serious: No
  Sender: FDA-Public Use
  Company Number: NVSC2021US074042

PATIENT
  Sex: Female

DRUGS (1)
  1. TYKERB [Suspect]
     Active Substance: LAPATINIB DITOSYLATE
     Indication: BREAST CANCER
     Dosage: 250 MG, QD
     Route: 048
     Dates: start: 20200130

REACTIONS (3)
  - Pruritus [Unknown]
  - Oral mucosal blistering [Unknown]
  - Incorrect product administration duration [Unknown]
